FAERS Safety Report 6284816-5 (Version None)
Quarter: 2009Q3

REPORT INFORMATION
  Report Type: 
  Country: None (occurrence: None)
  Receive Date: 20090723
  Receipt Date: 20090708
  Transmission Date: 20100115
  Serious: Yes (Death, Hospitalization)
  Sender: FDA-Public Use
  Company Number: 2009002036

PATIENT
  Age: 45 Year
  Sex: Female

DRUGS (2)
  1. ERLOTINIB (ERLOTINIB) (TABLET) (ERLOTINIB) [Suspect]
     Indication: NON-SMALL CELL LUNG CANCER
     Dosage: (150 MG,QD),ORAL
     Route: 048
     Dates: start: 20090427, end: 20090520
  2. RO4858696/PLACEBO [Suspect]
     Indication: NON-SMALL CELL LUNG CANCER
     Dosage: (9 MG/KG,QW),INTRAVENOUS
     Route: 042
     Dates: start: 20090427, end: 20090520

REACTIONS (4)
  - HEPATIC FAILURE [None]
  - ILEUS PARALYTIC [None]
  - LARGE INTESTINE PERFORATION [None]
  - PERITONITIS [None]
